FAERS Safety Report 24057877 (Version 1)
Quarter: 2024Q3

REPORT INFORMATION
  Report Type: Spontaneous
  Country: US (occurrence: US)
  Receive Date: 20240707
  Receipt Date: 20240707
  Transmission Date: 20241016
  Serious: Yes (Death, Hospitalization, Other)
  Sender: DR REDDYS
  Company Number: US-DRL-USA-LIT/USA/24/0009739

PATIENT
  Age: 27 Year
  Sex: Male

DRUGS (10)
  1. FLUCONAZOLE [Suspect]
     Active Substance: FLUCONAZOLE
     Indication: Antifungal prophylaxis
  2. FLUCONAZOLE [Suspect]
     Active Substance: FLUCONAZOLE
     Indication: Aspergillus infection
  3. ACYCLOVIR [Suspect]
     Active Substance: ACYCLOVIR
     Indication: Antifungal prophylaxis
  4. MEROPENEM [Suspect]
     Active Substance: MEROPENEM
     Indication: Antifungal prophylaxis
  5. CASPOFUNGIN [Suspect]
     Active Substance: CASPOFUNGIN
     Indication: Antifungal prophylaxis
  6. AMIKACIN [Suspect]
     Active Substance: AMIKACIN
     Indication: Antifungal prophylaxis
  7. VANCOMYCIN [Suspect]
     Active Substance: VANCOMYCIN
     Indication: Antifungal prophylaxis
  8. VANCOMYCIN [Suspect]
     Active Substance: VANCOMYCIN
     Indication: Meningitis
  9. CEFEPIME [Suspect]
     Active Substance: CEFEPIME HYDROCHLORIDE
     Indication: Meningitis
  10. AMPHOTERICIN B [Suspect]
     Active Substance: AMPHOTERICIN B
     Indication: Antifungal prophylaxis

REACTIONS (8)
  - Central vision loss [Fatal]
  - Eye pain [Fatal]
  - Eye haemorrhage [Fatal]
  - Areflexia [Fatal]
  - Septic embolus [Fatal]
  - Condition aggravated [Fatal]
  - Drug ineffective for unapproved indication [Fatal]
  - Disseminated aspergillosis [Fatal]
